FAERS Safety Report 25769255 (Version 12)
Quarter: 2025Q4

REPORT INFORMATION
  Report Type: Spontaneous
  Country: US (occurrence: US)
  Receive Date: 20250906
  Receipt Date: 20251226
  Transmission Date: 20260118
  Serious: Yes (Other)
  Sender: UNITED THERAPEUTICS
  Company Number: US-UNITED THERAPEUTICS-UNT-2025-030558

PATIENT
  Sex: Female
  Weight: 86.168 kg

DRUGS (19)
  1. REMODULIN [Suspect]
     Active Substance: TREPROSTINIL
     Indication: Pulmonary arterial hypertension
     Dosage: 0.010 ?G/KG (SELF-FILLED CASSETTE WITH 2 ML; RATE OF 21 MCL/HR), CONTINUING
  2. REMODULIN [Suspect]
     Active Substance: TREPROSTINIL
     Dosage: 0.014 ?G/KG (SELF FILL WITH 2.6 ML PER CASSETTE, RATE OF 29 MCL/HOUR), CONTINUING
  3. REMODULIN [Suspect]
     Active Substance: TREPROSTINIL
     Dosage: 0.015 ?G/KG (SELF FILL WITH 2.7 ML PER CASSETTE, RATE OF 31 MCL/HOUR), CONTINUING
  4. REMODULIN [Suspect]
     Active Substance: TREPROSTINIL
     Dosage: UNK, CONTINUING
  5. MECLIZINE HYDROCHLORIDE [Concomitant]
     Active Substance: MECLIZINE HYDROCHLORIDE
     Indication: Product used for unknown indication
  6. FAMOTIDINE [Concomitant]
     Active Substance: FAMOTIDINE
     Indication: Product used for unknown indication
  7. METFORMIN HYDROCHLORIDE [Concomitant]
     Active Substance: METFORMIN HYDROCHLORIDE
     Indication: Product used for unknown indication
  8. SODIUM CHLORIDE [Concomitant]
     Active Substance: SODIUM CHLORIDE
     Indication: Product used for unknown indication
  9. JARDIANCE [Concomitant]
     Active Substance: EMPAGLIFLOZIN
     Indication: Product used for unknown indication
  10. TADALAFIL [Concomitant]
     Active Substance: TADALAFIL
     Indication: Product used for unknown indication
  11. VITAMINS [Concomitant]
     Active Substance: VITAMINS
     Indication: Product used for unknown indication
  12. LEVOTHYROXINE SODIUM [Concomitant]
     Active Substance: LEVOTHYROXINE SODIUM
     Indication: Product used for unknown indication
  13. GLYBURIDE [Concomitant]
     Active Substance: GLYBURIDE
     Indication: Product used for unknown indication
  14. ATORVASTATIN CALCIUM [Concomitant]
     Active Substance: ATORVASTATIN CALCIUM
     Indication: Product used for unknown indication
     Dosage: UNK
  15. LANTUS [Concomitant]
     Active Substance: INSULIN GLARGINE
     Indication: Product used for unknown indication
     Dosage: UNK
  16. BUTALBITAL, ACETAMINOPHEN, AND CAFFEINE [Concomitant]
     Active Substance: ACETAMINOPHEN\BUTALBITAL\CAFFEINE
     Indication: Product used for unknown indication
     Dosage: UNK
  17. ASPIRIN [Concomitant]
     Active Substance: ASPIRIN
     Indication: Product used for unknown indication
     Dosage: UNK
  18. ONDANSETRON HYDROCHLORIDE [Concomitant]
     Active Substance: ONDANSETRON HYDROCHLORIDE
     Indication: Product used for unknown indication
     Dosage: UNK
  19. INSULIN LISPRO [Concomitant]
     Active Substance: INSULIN LISPRO
     Indication: Product used for unknown indication
     Dosage: UNK

REACTIONS (35)
  - Neuropathy peripheral [Recovering/Resolving]
  - Angina pectoris [Unknown]
  - Headache [Unknown]
  - Nausea [Unknown]
  - Restless legs syndrome [Unknown]
  - Flushing [Unknown]
  - Neck pain [Unknown]
  - Back pain [Unknown]
  - Insomnia [Unknown]
  - Weight decreased [Unknown]
  - Condition aggravated [Unknown]
  - Hepatic pain [Unknown]
  - Malaise [Unknown]
  - Erythema [Unknown]
  - Dyspnoea [Unknown]
  - Fall [Recovered/Resolved with Sequelae]
  - Joint injury [Unknown]
  - Infusion site pain [Unknown]
  - Migraine [Unknown]
  - Infusion site reaction [Unknown]
  - Infusion site haemorrhage [Unknown]
  - Infusion site discolouration [Unknown]
  - Infusion site nodule [Unknown]
  - Infusion site haematoma [Unknown]
  - Hepatomegaly [Unknown]
  - Burning sensation [Unknown]
  - Infusion site bruising [Unknown]
  - Infusion site injury [Unknown]
  - Device infusion issue [Unknown]
  - Device leakage [Unknown]
  - Device physical property issue [Unknown]
  - Device infusion issue [Unknown]
  - Device maintenance issue [Unknown]
  - Unintentional medical device removal [Unknown]
  - Device placement issue [Unknown]

NARRATIVE: CASE EVENT DATE: 20250101
